FAERS Safety Report 5618792-2 (Version None)
Quarter: 2008Q1

REPORT INFORMATION
  Report Type: 
  Country: None (occurrence: None)
  Receive Date: 20080207
  Receipt Date: 20080123
  Transmission Date: 20080703
  Serious: Yes (Hospitalization)
  Sender: FDA-Public Use
  Company Number: JP-ROCHE-422696

PATIENT
  Age: 25 Year
  Sex: Female
  Weight: 41 kg

DRUGS (1)
  1. PEGASYS [Suspect]
     Route: 058
     Dates: start: 20050506, end: 20051020

REACTIONS (2)
  - ANAEMIA HAEMOLYTIC AUTOIMMUNE [None]
  - JAUNDICE [None]
